FAERS Safety Report 15144799 (Version 1)
Quarter: 2018Q3

REPORT INFORMATION
  Report Type: Spontaneous
  Country: PL (occurrence: PL)
  Receive Date: 20180713
  Receipt Date: 20180713
  Transmission Date: 20181010
  Serious: Yes (Life-Threatening, Hospitalization, Other)
  Sender: FDA-Public Use
  Company Number: PHHY2018PL037344

PATIENT
  Age: 81 Year
  Sex: Female

DRUGS (3)
  1. AMOXICILLIN. [Suspect]
     Active Substance: AMOXICILLIN
     Indication: UPPER RESPIRATORY TRACT INFECTION
     Dosage: 1000 MG, BID
     Route: 048
  2. HYDROCHLOROTHIAZIDE. [Concomitant]
     Active Substance: HYDROCHLOROTHIAZIDE
     Indication: HYPERTENSION
     Dosage: 25 MG, QD
     Route: 065
  3. PERINDOPRIL/INDAPAMIDE [Concomitant]
     Active Substance: INDAPAMIDE\PERINDOPRIL
     Indication: HYPERTENSION
     Route: 065

REACTIONS (9)
  - Stevens-Johnson syndrome [Recovered/Resolved]
  - Rash erythematous [Recovered/Resolved]
  - Skin erosion [Recovered/Resolved]
  - Dermatitis exfoliative generalised [Recovered/Resolved]
  - Urine output decreased [Not Recovered/Not Resolved]
  - Rash follicular [Recovered/Resolved]
  - Oedema peripheral [Not Recovered/Not Resolved]
  - Epidermolysis [Recovered/Resolved]
  - Acute kidney injury [Not Recovered/Not Resolved]
